FAERS Safety Report 6934634-7 (Version None)
Quarter: 2010Q3

REPORT INFORMATION
  Report Type: 
  Country: None (occurrence: None)
  Receive Date: 20100820
  Receipt Date: 20100810
  Transmission Date: 20110219
  Serious: Yes (Other)
  Sender: FDA-Public Use
  Company Number: US-ABBOTT-10P-163-0652847-00

PATIENT
  Sex: Female
  Weight: 58.566 kg

DRUGS (1)
  1. HUMIRA [Suspect]
     Indication: RHEUMATOID ARTHRITIS
     Dates: start: 20070323, end: 20100529

REACTIONS (7)
  - ARTHRITIS [None]
  - ERYTHEMA [None]
  - LEUKOCYTOSIS [None]
  - LUNG SQUAMOUS CELL CARCINOMA STAGE UNSPECIFIED [None]
  - LYMPHADENOPATHY MEDIASTINAL [None]
  - PRODUCTIVE COUGH [None]
  - PYREXIA [None]
